FAERS Safety Report 5509636-8 (Version None)
Quarter: 2007Q4

REPORT INFORMATION
  Report Type: 
  Country: None (occurrence: None)
  Receive Date: 20071107
  Receipt Date: 20071107
  Transmission Date: 20080405
  Serious: Yes (Hospitalization)
  Sender: FDA-Public Use
  Company Number: None

PATIENT
  Sex: Female

DRUGS (1)
  1. NORVASC [Suspect]
     Dosage: 5MG 1 PO QD PO
     Route: 048

REACTIONS (4)
  - ANXIETY [None]
  - FEELING JITTERY [None]
  - FLUSHING [None]
  - PALPITATIONS [None]
